FAERS Safety Report 9326024 (Version 1)
Quarter: 2013Q2

REPORT INFORMATION
  Report Type: Spontaneous
  Country: GB (occurrence: GB)
  Receive Date: 20130604
  Receipt Date: 20130604
  Transmission Date: 20140414
  Serious: Yes (Hospitalization, Other)
  Sender: FDA-Public Use
  Company Number: GB-PFIZER INC-2013143477

PATIENT
  Age: 81 Year
  Sex: Male

DRUGS (1)
  1. TOVIAZ [Suspect]
     Indication: POLLAKIURIA
     Dosage: 4 MG, 1X/DAY
     Dates: start: 20130226, end: 2013

REACTIONS (3)
  - Urinary retention [Recovering/Resolving]
  - Cystitis [Recovered/Resolved]
  - Prostatomegaly [Recovering/Resolving]
